FAERS Safety Report 8166727-3 (Version None)
Quarter: 2012Q1

REPORT INFORMATION
  Report Type: 
  Country: None (occurrence: None)
  Receive Date: 20120227
  Receipt Date: 20120221
  Transmission Date: 20120608
  Serious: Yes (Disabling, Other)
  Sender: FDA-Public Use
  Company Number: ES-ROCHE-1040920

PATIENT
  Sex: Female
  Weight: 60 kg

DRUGS (5)
  1. TAMOXIFEN CITRATE [Concomitant]
     Indication: BREAST CANCER METASTATIC
     Route: 048
     Dates: start: 20100501, end: 20110301
  2. ZOMETA [Suspect]
     Indication: BREAST CANCER METASTATIC
     Route: 042
     Dates: start: 20090219, end: 20091217
  3. GOSERELIN [Concomitant]
     Indication: BREAST CANCER METASTATIC
     Route: 030
     Dates: start: 20100501, end: 20110301
  4. AVASTIN [Suspect]
     Indication: BREAST CANCER METASTATIC
     Route: 042
     Dates: start: 20091211, end: 20091217
  5. DOCETAXEL [Concomitant]
     Indication: BREAST CANCER METASTATIC
     Route: 042
     Dates: start: 20091027, end: 20100430

REACTIONS (1)
  - OSTEONECROSIS OF JAW [None]
